FAERS Safety Report 15419200 (Version 1)
Quarter: 2018Q3

REPORT INFORMATION
  Report Type: Spontaneous
  Country: US (occurrence: US)
  Receive Date: 20180920
  Receipt Date: 20180920
  Transmission Date: 20181010
  Serious: Yes (Hospitalization)
  Sender: FDA-Public Use
  Company Number: None

PATIENT
  Age: 39 Year
  Sex: Female
  Weight: 76.5 kg

DRUGS (2)
  1. KRATOM [Suspect]
     Active Substance: MITRAGYNINE\HERBALS
     Indication: WITHDRAWAL SYNDROME
     Dosage: ?          QUANTITY:2 POWDER LEAF;?
     Route: 048
     Dates: start: 20160601, end: 20180614
  2. KRATOM [Suspect]
     Active Substance: MITRAGYNINE\HERBALS
     Indication: PAIN
     Dosage: ?          QUANTITY:2 POWDER LEAF;?
     Route: 048
     Dates: start: 20160601, end: 20180614

REACTIONS (6)
  - Unemployment [None]
  - Feeling abnormal [None]
  - Loss of personal independence in daily activities [None]
  - Drug dependence [None]
  - Apathy [None]
  - Pain [None]

NARRATIVE: CASE EVENT DATE: 20180614
